FAERS Safety Report 13422245 (Version 1)
Quarter: 2017Q2

REPORT INFORMATION
  Report Type: Spontaneous
  Country: US (occurrence: US)
  Receive Date: 20170407
  Receipt Date: 20170407
  Transmission Date: 20170830
  Serious: Yes (Hospitalization, Disabling, Other)
  Sender: FDA-Public Use
  Company Number: None

PATIENT
  Age: 72 Year
  Sex: Male
  Weight: 80 kg

DRUGS (1)
  1. NIVOLUMAB [Suspect]
     Active Substance: NIVOLUMAB

REACTIONS (5)
  - Blood alkaline phosphatase increased [None]
  - Blood bilirubin increased [None]
  - Hepatic enzyme increased [None]
  - Complications of transplanted liver [None]
  - Transplant rejection [None]

NARRATIVE: CASE EVENT DATE: 20170328
